FAERS Safety Report 14882820 (Version 2)
Quarter: 2018Q2

REPORT INFORMATION
  Report Type: Spontaneous
  Country: JP (occurrence: JP)
  Receive Date: 20180511
  Receipt Date: 20180607
  Transmission Date: 20180711
  Serious: Yes (Other)
  Sender: FDA-Public Use
  Company Number: JP-AMGEN-JPNSP2018064581

PATIENT
  Age: 88 Year
  Sex: Female

DRUGS (6)
  1. CALCIUM L-ASPARTATE [Concomitant]
     Dosage: UNK
     Route: 048
  2. PRALIA [Suspect]
     Active Substance: DENOSUMAB
     Indication: OSTEOPOROSIS
     Dosage: 60 MG, Q6MO
     Route: 058
     Dates: start: 20170425, end: 20171023
  3. REBAMIPIDE [Concomitant]
     Active Substance: REBAMIPIDE
     Dosage: UNK
     Route: 048
  4. ONEALFA [Concomitant]
     Active Substance: ALFACALCIDOL
     Dosage: UNK
     Route: 048
  5. CELECOX [Concomitant]
     Active Substance: CELECOXIB
     Dosage: UNK
     Route: 048
  6. OPALMON [Concomitant]
     Active Substance: LIMAPROST
     Dosage: UNK
     Route: 048

REACTIONS (3)
  - Osteonecrosis of jaw [Not Recovered/Not Resolved]
  - Fracture [Unknown]
  - Gingivitis [Unknown]

NARRATIVE: CASE EVENT DATE: 20180409
